FAERS Safety Report 11594827 (Version 2)
Quarter: 2015Q4

REPORT INFORMATION
  Report Type: Spontaneous
  Country: JP (occurrence: JP)
  Receive Date: 20151005
  Receipt Date: 20151009
  Transmission Date: 20160304
  Serious: Yes (Other)
  Sender: FDA-Public Use
  Company Number: JP-009507513-1510JPN001780

PATIENT
  Sex: Female

DRUGS (3)
  1. REMERON [Suspect]
     Active Substance: MIRTAZAPINE
     Indication: INSOMNIA
     Dosage: DIVIDED DOSE FREQUENCY UNKNOWN
     Route: 048
     Dates: start: 20150928, end: 20150928
  2. REMERON [Suspect]
     Active Substance: MIRTAZAPINE
     Dosage: DIVIDED DOSE FREQUENCY UNKNOWN
     Route: 048
     Dates: start: 20150929
  3. TETRAMIDE TABLETS 30 MG [Suspect]
     Active Substance: MIANSERIN HYDROCHLORIDE
     Indication: INSOMNIA
     Dosage: UNK
     Route: 048
     Dates: end: 20150927

REACTIONS (6)
  - Abasia [Unknown]
  - Intentional product use issue [Unknown]
  - Speech disorder [Unknown]
  - Dizziness [Unknown]
  - Eyelid ptosis [Unknown]
  - Dysarthria [Unknown]

NARRATIVE: CASE EVENT DATE: 20150929
